FAERS Safety Report 4909319-9 (Version None)
Quarter: 2006Q1

REPORT INFORMATION
  Report Type: 
  Country: None (occurrence: None)
  Receive Date: 20060210
  Receipt Date: 20060210
  Transmission Date: 20060701
  Serious: Yes (Other)
  Sender: FDA-Public Use
  Company Number: None

PATIENT
  Age: 21 Year
  Weight: 52.6173 kg

DRUGS (1)
  1. METROGEL-VAGINAL [Suspect]
     Indication: VAGINITIS BACTERIAL
     Dosage: ONE APPLICATOR FULL 5 DAYS VAG
     Route: 067
     Dates: start: 20051231, end: 20060104

REACTIONS (2)
  - BLOODY DISCHARGE [None]
  - VAGINAL HAEMORRHAGE [None]
